FAERS Safety Report 5599337-2 (Version None)
Quarter: 2008Q1

REPORT INFORMATION
  Report Type: 
  Country: None (occurrence: None)
  Receive Date: 20080122
  Receipt Date: 20080114
  Transmission Date: 20080703
  Serious: Yes (Disabling)
  Sender: FDA-Public Use
  Company Number: GB-PFIZER INC-2008004663

PATIENT
  Age: 60 Year
  Sex: Female

DRUGS (1)
  1. DETROL LA [Suspect]
     Route: 048

REACTIONS (8)
  - CONSTIPATION [None]
  - DIVERTICULUM [None]
  - DIZZINESS [None]
  - DYSPEPSIA [None]
  - FLATULENCE [None]
  - IMPAIRED DRIVING ABILITY [None]
  - INSOMNIA [None]
  - VERTIGO [None]
